FAERS Safety Report 10664449 (Version 2)
Quarter: 2015Q1

REPORT INFORMATION
  Report Type: Spontaneous
  Country: IT (occurrence: IT)
  Receive Date: 20141219
  Receipt Date: 20150226
  Transmission Date: 20150720
  Serious: Yes (Hospitalization)
  Sender: FDA-Public Use
  Company Number: IT-PFIZER INC-2014348119

PATIENT
  Age: 80 Year
  Sex: Male

DRUGS (8)
  1. CONGESCOR [Concomitant]
     Active Substance: BISOPROLOL
     Dosage: 2.5 MG, UNK
  2. PANTOPRAZOLE [Concomitant]
     Active Substance: PANTOPRAZOLE SODIUM
     Dosage: 20 MG, UNK
  3. LASIX [Concomitant]
     Active Substance: FUROSEMIDE
     Dosage: 25 MG, UNK
  4. ZOLOFT [Suspect]
     Active Substance: SERTRALINE HYDROCHLORIDE
     Dosage: 1 DF, AS NEEDED
     Route: 048
     Dates: start: 20140101, end: 20140602
  5. LIORESAL [Concomitant]
     Active Substance: BACLOFEN
     Dosage: 25 MGX3
  6. TORVAST [Concomitant]
     Active Substance: ATORVASTATIN
     Dosage: 20 MG, UNK
  7. ASCRIPTIN [Concomitant]
     Active Substance: ASPIRIN
     Dosage: 300 MG, UNK
  8. EPALFEN [Concomitant]
     Dosage: UNK

REACTIONS (3)
  - Coma [Unknown]
  - Overdose [Unknown]
  - Respiratory arrest [Unknown]

NARRATIVE: CASE EVENT DATE: 20140602
